FAERS Safety Report 21970165 (Version 1)
Quarter: 2023Q1

REPORT INFORMATION
  Report Type: Spontaneous
  Country: US (occurrence: US)
  Receive Date: 20230209
  Receipt Date: 20230209
  Transmission Date: 20230418
  Serious: Yes (Other)
  Sender: FDA-Public Use
  Company Number: US-AUROBINDO-AUR-APL-2023-005937

PATIENT
  Age: 18 Year
  Sex: Female

DRUGS (2)
  1. VINCRISTINE SULFATE [Suspect]
     Active Substance: VINCRISTINE SULFATE
     Indication: Congenital fibrosarcoma
     Dosage: 0.031 MG PER KG Q1W
     Route: 065
  2. ACTINOMYCIN D [Suspect]
     Active Substance: DACTINOMYCIN
     Indication: Congenital fibrosarcoma
     Dosage: 0.03 MG PER KG Q3W
     Route: 065

REACTIONS (1)
  - Klebsiella bacteraemia [Unknown]
